FAERS Safety Report 8826601 (Version 1)
Quarter: 2012Q4

REPORT INFORMATION
  Report Type: 
  Country: US (occurrence: US)
  Receive Date: 20121005
  Receipt Date: 20121005
  Transmission Date: 20130627
  Serious: Yes (Other)
  Sender: FDA-Public Use
  Company Number: CHPA2012US020616

PATIENT
  Age: 71 Year
  Sex: Female

DRUGS (1)
  1. THERAPEUTIC MINERAL ICE [Suspect]
     Indication: BACK PAIN
     Dosage: AS DIRECTED, AS NEEDED
     Route: 061
     Dates: start: 2009

REACTIONS (3)
  - Back pain [Recovered/Resolved]
  - Activities of daily living impaired [Recovered/Resolved]
  - Off label use [Unknown]
